FAERS Safety Report 7422596-8 (Version None)
Quarter: 2011Q2

REPORT INFORMATION
  Report Type: 
  Country: None (occurrence: None)
  Receive Date: 20110419
  Receipt Date: 20110405
  Transmission Date: 20111010
  Serious: Yes (Other)
  Sender: FDA-Public Use
  Company Number: US-JNJFOC-20110402361

PATIENT
  Sex: Female
  Weight: 70.31 kg

DRUGS (11)
  1. APRISO [Concomitant]
     Indication: COLITIS ULCERATIVE
     Route: 048
  2. PRISTIQ [Concomitant]
     Indication: DEPRESSION
     Route: 048
  3. PREDNISONE [Concomitant]
     Indication: INFLAMMATION
     Route: 048
  4. REMICADE [Suspect]
     Indication: RHEUMATOID ARTHRITIS
     Route: 042
  5. SANDOZ FENTANYL TDS [Suspect]
     Indication: CROHN'S DISEASE
     Route: 062
  6. DILAUDID [Concomitant]
     Indication: PAIN
     Route: 048
  7. CIPRO [Concomitant]
     Indication: CROHN'S DISEASE
     Route: 048
  8. FLAGYL [Concomitant]
     Indication: CROHN'S DISEASE
     Route: 048
  9. REMICADE [Suspect]
     Indication: CROHN'S DISEASE
     Route: 042
  10. DEXILANT [Concomitant]
     Indication: GASTROOESOPHAGEAL REFLUX DISEASE
     Route: 048
  11. CRESTOR [Concomitant]
     Indication: BLOOD CHOLESTEROL
     Route: 048

REACTIONS (7)
  - RECTAL ABSCESS [None]
  - PRURITUS [None]
  - MYALGIA [None]
  - RECTAL FISSURE [None]
  - PAIN [None]
  - THERAPEUTIC RESPONSE DECREASED [None]
  - ARTHRALGIA [None]
